FAERS Safety Report 25890725 (Version 2)
Quarter: 2025Q4

REPORT INFORMATION
  Report Type: Spontaneous
  Country: US (occurrence: US)
  Receive Date: 20251007
  Receipt Date: 20251031
  Transmission Date: 20260117
  Serious: Yes (Other)
  Sender: BLUEPRINT MEDICINES CORPORATION
  Company Number: US-Blueprint Medicines Corporation-2025-AER-02169

PATIENT
  Age: 42 Year
  Sex: Female
  Weight: 75.8 kg

DRUGS (18)
  1. AYVAKIT [Suspect]
     Active Substance: AVAPRITINIB
     Indication: Indolent systemic mastocytosis
     Route: 048
     Dates: start: 20240914, end: 20250930
  2. AYVAKIT [Suspect]
     Active Substance: AVAPRITINIB
     Route: 048
     Dates: start: 20251002
  3. Cholecalciferol/Vitamin D3 [Concomitant]
     Indication: Vitamin supplementation
     Route: 065
     Dates: start: 2012
  4. BENADRYL [Concomitant]
     Active Substance: DIPHENHYDRAMINE HYDROCHLORIDE
     Indication: Indolent systemic mastocytosis
     Dosage: Q.H.S AND ON AS NEEDED BASIS
     Route: 048
     Dates: start: 2014
  5. DOXEPIN [Concomitant]
     Active Substance: DOXEPIN
     Indication: Insomnia
     Route: 065
     Dates: start: 2014
  6. CYMBALTA [Concomitant]
     Active Substance: DULOXETINE HYDROCHLORIDE
     Indication: Neuralgia
     Route: 065
     Dates: start: 2012
  7. PEPCID [Concomitant]
     Active Substance: FAMOTIDINE
     Indication: Indolent systemic mastocytosis
     Route: 065
     Dates: start: 20200115
  8. ALLEGRA [Concomitant]
     Active Substance: FEXOFENADINE HYDROCHLORIDE
     Indication: Indolent systemic mastocytosis
     Route: 065
     Dates: start: 201204
  9. NEURONTIN [Concomitant]
     Active Substance: GABAPENTIN
     Indication: Neuralgia
     Dosage: TRYING TO CUT BACK THE P.M. DOSE TO 600 MG
     Route: 065
     Dates: start: 2014
  10. FERROUS SULFATE ANHYDROUS [Concomitant]
     Active Substance: FERROUS SULFATE ANHYDROUS
     Indication: Mineral supplementation
     Dosage: TRYING TO CUT BAKC THE P.M. DOSE TO 600 MG
     Route: 065
  11. SINGULAIR [Concomitant]
     Active Substance: MONTELUKAST SODIUM
     Indication: Indolent systemic mastocytosis
     Route: 065
     Dates: start: 2014
  12. NIFEDIPINE [Concomitant]
     Active Substance: NIFEDIPINE
     Indication: Oesophageal spasm
     Route: 065
     Dates: start: 20211216
  13. XOLAIR [Concomitant]
     Active Substance: OMALIZUMAB
     Indication: Indolent systemic mastocytosis
     Route: 065
     Dates: start: 20200831
  14. ZOFRAN [Concomitant]
     Active Substance: ONDANSETRON HYDROCHLORIDE
     Indication: Nausea
     Dosage: A FEW TIMES PER MONTH
     Route: 065
     Dates: start: 2020
  15. PROPRANOLOL [Concomitant]
     Active Substance: PROPRANOLOL HYDROCHLORIDE
     Indication: Migraine
     Route: 065
     Dates: start: 2018
  16. VITAMINS [Concomitant]
     Active Substance: VITAMINS
     Indication: Vitamin supplementation
     Route: 065
     Dates: start: 2012
  17. Vitamin C and Folate [Concomitant]
     Indication: Vitamin supplementation
     Route: 065
  18. WEGOVY [Concomitant]
     Active Substance: SEMAGLUTIDE
     Indication: Weight decreased
     Route: 065
     Dates: start: 2025

REACTIONS (13)
  - Petit mal epilepsy [Recovered/Resolved with Sequelae]
  - Unresponsive to stimuli [Recovered/Resolved with Sequelae]
  - Eye pain [Recovered/Resolved with Sequelae]
  - Tremor [Recovered/Resolved with Sequelae]
  - Headache [Recovered/Resolved]
  - Dizziness [Unknown]
  - Electric shock sensation [Unknown]
  - Migraine [Unknown]
  - Time perception altered [Unknown]
  - Autonomic nervous system imbalance [Unknown]
  - Small fibre neuropathy [Unknown]
  - Anxiety [Unknown]
  - Off label use [Unknown]

NARRATIVE: CASE EVENT DATE: 20250929
